FAERS Safety Report 12505648 (Version 1)
Quarter: 2016Q2

REPORT INFORMATION
  Report Type: Spontaneous
  Country: IT (occurrence: IT)
  Receive Date: 20160628
  Receipt Date: 20160628
  Transmission Date: 20160815
  Serious: Yes (Other)
  Sender: FDA-Public Use
  Company Number: IT-CORDEN PHARMA LATINA S.P.A.-IT-2016COR000182

PATIENT
  Age: 71 Year
  Sex: Male

DRUGS (3)
  1. GRANULOCYTE COLONY STIMULATING FACTOR [Suspect]
     Active Substance: GRANULOCYTE COLONY-STIMULATING FACTOR NOS
     Indication: PRODUCT USED FOR UNKNOWN INDICATION
     Dosage: UNK, 3 CYCLES
  2. CISPLATIN. [Suspect]
     Active Substance: CISPLATIN
     Indication: BLADDER CANCER
     Dosage: 75 MG/MQ, ON DAY 1 OF THE 3-WEEK CYCLE, FOR 3 CYCLES
     Route: 042
  3. ETOPOSIDE. [Suspect]
     Active Substance: ETOPOSIDE
     Indication: BLADDER CANCER
     Dosage: 100 MG/MQ, ON DAYS 1 TO 3 EVERY 3 WEEKS, FOR 3 CYCLES
     Route: 042

REACTIONS (4)
  - Thrombocytopenia [Unknown]
  - Nausea [Unknown]
  - Nephropathy toxic [Unknown]
  - Anaemia [Unknown]
